FAERS Safety Report 5960288-2 (Version None)
Quarter: 2008Q4

REPORT INFORMATION
  Report Type: 
  Country: None (occurrence: None)
  Receive Date: 20081120
  Receipt Date: 20081117
  Transmission Date: 20090506
  Serious: Yes (Death)
  Sender: FDA-Public Use
  Company Number: US-ASTRAZENECA-2008UW12625

PATIENT
  Age: 29 Year
  Sex: Male

DRUGS (18)
  1. SEROQUEL [Suspect]
     Indication: INSOMNIA
     Route: 048
  2. SEROQUEL [Suspect]
     Indication: IRRITABILITY
     Route: 048
  3. SEROQUEL [Suspect]
     Indication: NIGHTMARE
     Route: 048
  4. SEROQUEL [Suspect]
     Indication: PARANOIA
     Route: 048
  5. SEROQUEL [Suspect]
     Indication: ANXIETY
     Route: 048
  6. SEROQUEL [Suspect]
     Indication: DEPRESSED MOOD
     Route: 048
  7. SEROQUEL [Suspect]
     Route: 048
  8. SEROQUEL [Suspect]
     Route: 048
  9. SEROQUEL [Suspect]
     Route: 048
  10. SEROQUEL [Suspect]
     Route: 048
  11. SEROQUEL [Suspect]
     Route: 048
  12. SEROQUEL [Suspect]
     Route: 048
  13. PAROXETINE HCL [Interacting]
  14. KLONOPIN [Interacting]
  15. VALPROIC ACID [Interacting]
     Indication: IRRITABILITY
  16. VALPROIC ACID [Interacting]
     Indication: ANGER
  17. GABAPENTIN [Concomitant]
     Indication: ARTHRALGIA
  18. MORPHINE [Concomitant]

REACTIONS (16)
  - ARTHRALGIA [None]
  - DEATH [None]
  - DRUG INTERACTION [None]
  - DYSPHONIA [None]
  - FATIGUE [None]
  - FEELING ABNORMAL [None]
  - HEADACHE [None]
  - MEMORY IMPAIRMENT [None]
  - NIGHTMARE [None]
  - OEDEMA PERIPHERAL [None]
  - OVERDOSE [None]
  - POST-TRAUMATIC STRESS DISORDER [None]
  - SLEEP PARALYSIS [None]
  - SWELLING FACE [None]
  - TREMOR [None]
  - WEIGHT INCREASED [None]
